FAERS Safety Report 9861279 (Version 1)
Quarter: 2014Q1

REPORT INFORMATION
  Report Type: Spontaneous
  Country: JP (occurrence: JP)
  Receive Date: 20140202
  Receipt Date: 20140202
  Transmission Date: 20141002
  Serious: No
  Sender: FDA-Public Use
  Company Number: JP-ALLERGAN-1304424US

PATIENT
  Age: 78 Year
  Sex: Male

DRUGS (1)
  1. BOTOX [Suspect]
     Indication: VIITH NERVE PARALYSIS
     Dosage: 10 UNITS, SINGLE
     Route: 030

REACTIONS (2)
  - Lagophthalmos [Recovered/Resolved]
  - Corneal erosion [Recovered/Resolved]
